FAERS Safety Report 8721644 (Version 3)
Quarter: 2014Q1

REPORT INFORMATION
  Report Type: Spontaneous
  Country: US (occurrence: US)
  Receive Date: 20120814
  Receipt Date: 20140109
  Transmission Date: 20141002
  Serious: Yes (Hospitalization)
  Sender: FDA-Public Use
  Company Number: US-BAYER-2012-078617

PATIENT
  Age: 26 Year
  Sex: Female
  Weight: 66 kg

DRUGS (4)
  1. YAZ [Suspect]
     Dosage: UNK
     Dates: start: 2001, end: 2009
  2. YASMIN [Suspect]
     Dosage: UNK
     Dates: start: 2001, end: 2009
  3. HYDROCODONE W/ACETAMINOPHEN [Concomitant]
  4. PREDNISONE [Concomitant]

REACTIONS (7)
  - Gallbladder disorder [None]
  - Pancreatic disorder [None]
  - Cholecystitis acute [None]
  - Pain [None]
  - Injury [None]
  - Fear [None]
  - Pain [None]
